FAERS Safety Report 13176302 (Version 2)
Quarter: 2017Q1

REPORT INFORMATION
  Report Type: Spontaneous
  Country: US (occurrence: US)
  Receive Date: 20170201
  Receipt Date: 20170308
  Transmission Date: 20170428
  Serious: No
  Sender: FDA-Public Use
  Company Number: US-INCYTE CORPORATION-2017IN000582

PATIENT
  Age: 61 Year
  Sex: Male

DRUGS (1)
  1. JAKAFI [Suspect]
     Active Substance: RUXOLITINIB
     Indication: MYELOFIBROSIS
     Dosage: 20 MG, QD
     Route: 048
     Dates: start: 20170113, end: 20170121

REACTIONS (6)
  - Drug dose omission [Unknown]
  - Thrombocytopenia [Unknown]
  - Herpes zoster [Recovered/Resolved]
  - Anaemia [Unknown]
  - Pruritus [Unknown]
  - Musculoskeletal pain [Unknown]

NARRATIVE: CASE EVENT DATE: 20170121
